FAERS Safety Report 8309059-2 (Version None)
Quarter: 2012Q2

REPORT INFORMATION
  Report Type: 
  Country: None (occurrence: None)
  Receive Date: 20120424
  Receipt Date: 20120410
  Transmission Date: 20120825
  Serious: Yes (Other)
  Sender: FDA-Public Use
  Company Number: US-ROCHE-1058482

PATIENT
  Sex: Male
  Weight: 102.15 kg

DRUGS (4)
  1. CLOBAZAM [Suspect]
     Indication: PRODUCT USED FOR UNKNOWN INDICATION
  2. KLONOPIN [Suspect]
  3. DILANTIN [Suspect]
     Indication: EPILEPSY
     Dates: start: 19841201
  4. KLONOPIN [Suspect]
     Indication: PRODUCT USED FOR UNKNOWN INDICATION

REACTIONS (4)
  - CONVULSION [None]
  - ILL-DEFINED DISORDER [None]
  - MIGRAINE [None]
  - MEMORY IMPAIRMENT [None]
